FAERS Safety Report 16020215 (Version 1)
Quarter: 2019Q1

REPORT INFORMATION
  Report Type: Report from Study
  Country: None (occurrence: CA)
  Receive Date: 20190228
  Receipt Date: 20190228
  Transmission Date: 20190418
  Serious: Yes (Hospitalization)
  Sender: FDA-Public Use
  Company Number: CA-ABBVIE-19S-028-2681392-00

PATIENT
  Age: 45 Year
  Sex: Female

DRUGS (6)
  1. LUPRON DEPOT [Suspect]
     Active Substance: LEUPROLIDE ACETATE
     Indication: ENDOMETRIOSIS
     Route: 030
     Dates: start: 20190121
  2. LUPRON DEPOT [Suspect]
     Active Substance: LEUPROLIDE ACETATE
     Route: 030
     Dates: start: 20190121
  3. VENTOLIN [Concomitant]
     Active Substance: ALBUTEROL SULFATE
     Indication: PRODUCT USED FOR UNKNOWN INDICATION
  4. NAPROXEN. [Concomitant]
     Active Substance: NAPROXEN
     Indication: PRODUCT USED FOR UNKNOWN INDICATION
  5. CLARTIN SINUS [Concomitant]
     Indication: PRODUCT USED FOR UNKNOWN INDICATION
  6. AVAMISE [Concomitant]
     Indication: PRODUCT USED FOR UNKNOWN INDICATION

REACTIONS (22)
  - Gait disturbance [Unknown]
  - Haemorrhage [Recovered/Resolved]
  - Chills [Unknown]
  - Headache [Unknown]
  - Nausea [Unknown]
  - Dizziness [Recovered/Resolved]
  - Balance disorder [Unknown]
  - Blood pressure increased [Unknown]
  - Unevaluable event [Unknown]
  - General physical health deterioration [Unknown]
  - Dizziness [Unknown]
  - Hypoaesthesia [Unknown]
  - Somnolence [Unknown]
  - Feeling abnormal [Unknown]
  - Vision blurred [Unknown]
  - Fatigue [Unknown]
  - Hot flush [Unknown]
  - Abdominal pain [Unknown]
  - Peripheral coldness [Unknown]
  - Malaise [Unknown]
  - Headache [Not Recovered/Not Resolved]
  - Myalgia [Unknown]

NARRATIVE: CASE EVENT DATE: 2019
